FAERS Safety Report 19894136 (Version 1)
Quarter: 2021Q3

REPORT INFORMATION
  Report Type: Spontaneous
  Country: US (occurrence: US)
  Receive Date: 20210928
  Receipt Date: 20210928
  Transmission Date: 20211014
  Serious: Yes (Hospitalization)
  Sender: FDA-Public Use
  Company Number: None

PATIENT
  Sex: Female

DRUGS (1)
  1. IBRANCE [Suspect]
     Active Substance: PALBOCICLIB
     Indication: BREAST CANCER
     Dosage: TAKE 1. TABLET BY MOUTH 1 TIME A DAY ON DAYS 1 TO 21 OF A 28 DAY CYCLE
     Route: 048
     Dates: start: 202107, end: 20210921

REACTIONS (1)
  - Therapy cessation [None]
